FAERS Safety Report 8479528-3 (Version None)
Quarter: 2012Q2

REPORT INFORMATION
  Report Type: 
  Country: None (occurrence: None)
  Receive Date: 20120629
  Receipt Date: 20120621
  Transmission Date: 20120825
  Serious: Yes (Hospitalization)
  Sender: FDA-Public Use
  Company Number: US-ACTELION-A-NJ2012-67425

PATIENT

DRUGS (1)
  1. EPOPROSTENOL SODIUM [Suspect]
     Indication: PULMONARY ARTERIAL HYPERTENSION
     Dosage: 64.3 NG/KG, PER MIN
     Route: 041
     Dates: start: 20110217

REACTIONS (2)
  - DEHYDRATION [None]
  - ABDOMINAL DISCOMFORT [None]
